FAERS Safety Report 15862424 (Version 1)
Quarter: 2019Q1

REPORT INFORMATION
  Report Type: Spontaneous
  Country: US (occurrence: US)
  Receive Date: 20190124
  Receipt Date: 20190124
  Transmission Date: 20190417
  Serious: Yes (Hospitalization)
  Sender: FDA-Public Use
  Company Number: US-TEVA-2019-US-1001512

PATIENT
  Age: 45 Year
  Sex: Male

DRUGS (2)
  1. MOXIFLOXACIN. [Suspect]
     Active Substance: MOXIFLOXACIN
     Indication: ENDOPHTHALMITIS
     Dosage: 0.5MG/0.1ML WAS ADMINISTERED INTO THE ANTERIOR CHAMBER
     Route: 050
  2. MOXIFLOXACIN. [Suspect]
     Active Substance: MOXIFLOXACIN
     Indication: ANTIBIOTIC PROPHYLAXIS

REACTIONS (2)
  - Ocular hypertension [Recovered/Resolved]
  - Iris transillumination defect [Recovered/Resolved]
